FAERS Safety Report 16157184 (Version 1)
Quarter: 2019Q2

REPORT INFORMATION
  Report Type: Spontaneous
  Country: US (occurrence: US)
  Receive Date: 20190228
  Receipt Date: 20190228
  Transmission Date: 20190711
  Serious: No
  Sender: FDA-Public Use
  Company Number: None

PATIENT
  Age: 91 Year
  Sex: Male

DRUGS (1)
  1. IMATINIB MES TAB [Suspect]
     Active Substance: IMATINIB MESYLATE
     Indication: CHRONIC MYELOID LEUKAEMIA
     Dates: start: 201808

REACTIONS (3)
  - Fluid retention [None]
  - Vision blurred [None]
  - Lacrimation increased [None]

NARRATIVE: CASE EVENT DATE: 20180820
